FAERS Safety Report 8814945 (Version 2)
Quarter: 2014Q2

REPORT INFORMATION
  Report Type: Report from Study
  Country: US (occurrence: US)
  Receive Date: 20120928
  Receipt Date: 20140402
  Transmission Date: 20141212
  Serious: Yes (Death)
  Sender: FDA-Public Use
  Company Number: US-ROCHE-1129634

PATIENT
  Sex: Female

DRUGS (6)
  1. HERCEPTIN [Suspect]
     Indication: BREAST CANCER
     Dosage: IN 250CC NORMAL SALINE
     Route: 042
     Dates: start: 20100330
  2. ALOXI [Concomitant]
     Route: 042
     Dates: start: 20100330
  3. DECADRON [Concomitant]
     Dosage: IN 100ML NORMAL SALINE
     Route: 042
     Dates: start: 20100330
  4. CYTOXAN [Concomitant]
     Dosage: IN 250ML NORMAL SALINE
     Route: 065
     Dates: start: 20100330
  5. METHOTREXATE [Concomitant]
     Route: 042
     Dates: start: 20100330
  6. FLUOROURACIL [Concomitant]
     Route: 042
     Dates: start: 20100330

REACTIONS (1)
  - Death [Fatal]
